FAERS Safety Report 19860526 (Version 1)
Quarter: 2021Q3

REPORT INFORMATION
  Report Type: Spontaneous
  Country: US (occurrence: US)
  Receive Date: 20210921
  Receipt Date: 20210921
  Transmission Date: 20211014
  Serious: No
  Sender: FDA-Public Use
  Company Number: US-UNITED THERAPEUTICS-UNT-2021-017457

PATIENT
  Sex: Female
  Weight: 68.03 kg

DRUGS (3)
  1. ADCIRCA [Concomitant]
     Active Substance: TADALAFIL
     Indication: PULMONARY ARTERIAL HYPERTENSION
     Route: 065
  2. REMODULIN [Suspect]
     Active Substance: TREPROSTINIL
     Indication: PULMONARY ARTERIAL HYPERTENSION
     Dosage: UNK, CONTINUING
     Route: 058
     Dates: start: 20210811
  3. REMODULIN [Suspect]
     Active Substance: TREPROSTINIL
     Dosage: 0.1455 ?G/KG, CONTINUING
     Route: 058
     Dates: start: 2021

REACTIONS (4)
  - Infusion site pain [Unknown]
  - Infusion site bruising [Not Recovered/Not Resolved]
  - Infusion site nerve damage [Unknown]
  - Infusion site erythema [Not Recovered/Not Resolved]

NARRATIVE: CASE EVENT DATE: 2021
